FAERS Safety Report 6166624-9 (Version None)
Quarter: 2009Q2

REPORT INFORMATION
  Report Type: 
  Country: None (occurrence: None)
  Receive Date: 20090424
  Receipt Date: 20090223
  Transmission Date: 20091009
  Serious: No
  Sender: FDA-Public Use
  Company Number: US-ASTRAZENECA-2009UW05107

PATIENT
  Age: 55 Year
  Sex: Female

DRUGS (1)
  1. ZOMIG [Suspect]
     Route: 048
     Dates: start: 20070416

REACTIONS (1)
  - INFLUENZA [None]
